FAERS Safety Report 5489687-2 (Version None)
Quarter: 2007Q4

REPORT INFORMATION
  Report Type: 
  Country: None (occurrence: None)
  Receive Date: 20071010
  Receipt Date: 20070514
  Transmission Date: 20080405
  Serious: Yes (Other)
  Sender: FDA-Public Use
  Company Number: 2007SP009253

PATIENT
  Age: 20 Year
  Sex: Female

DRUGS (4)
  1. PROVENTIL-HFA [Suspect]
     Indication: DRUG USE FOR UNKNOWN INDICATION
     Dosage: PO
     Route: 048
  2. ALBUTEROL [Concomitant]
  3. QVAR 40 [Concomitant]
  4. EPIPEN [Concomitant]

REACTIONS (4)
  - ABDOMINAL PAIN [None]
  - ANXIETY [None]
  - HYPERSENSITIVITY [None]
  - NAUSEA [None]
